FAERS Safety Report 8319388-4 (Version None)
Quarter: 2012Q2

REPORT INFORMATION
  Report Type: 
  Country: None (occurrence: None)
  Receive Date: 20120427
  Receipt Date: 20120426
  Transmission Date: 20120825
  Serious: Yes (Death)
  Sender: FDA-Public Use
  Company Number: PHHY2012BE030429

PATIENT
  Age: 42 Year
  Sex: Male

DRUGS (7)
  1. LAMOTRIGINE [Suspect]
     Indication: EPILEPSY
     Dosage: 100 MG, QD
  2. LAMOTRIGINE [Suspect]
     Indication: EPILEPSY
     Dosage: 100 MG, QD
  3. LEVETIRACETAM [Concomitant]
  4. CLONAZEPAM [Concomitant]
  5. LAMICTAL [Suspect]
     Indication: EPILEPSY
     Dosage: 100 MG, QD
  6. CORTICOSTEROID NOS [Concomitant]
  7. LAMOTRIGINE [Suspect]
     Indication: EPILEPSY
     Dosage: 100 MG, QD

REACTIONS (7)
  - LYMPHADENOPATHY [None]
  - HYPERSENSITIVITY [None]
  - URTICARIA [None]
  - PYREXIA [None]
  - ANGIOEDEMA [None]
  - HEPATITIS ACUTE [None]
  - DRUG RASH WITH EOSINOPHILIA AND SYSTEMIC SYMPTOMS [None]
